FAERS Safety Report 19015087 (Version 1)
Quarter: 2021Q1

REPORT INFORMATION
  Report Type: Spontaneous
  Country: BR (occurrence: BR)
  Receive Date: 20210317
  Receipt Date: 20210317
  Transmission Date: 20210420
  Serious: Yes (Other)
  Sender: FDA-Public Use
  Company Number: BR-SUN PHARMACEUTICAL INDUSTRIES LTD-2021R1-285451

PATIENT
  Age: 64 Year
  Sex: Male

DRUGS (1)
  1. DOXORUBICIN [Suspect]
     Active Substance: DOXORUBICIN
     Indication: THERAPEUTIC EMBOLISATION
     Dosage: UNK
     Route: 065
     Dates: start: 201707

REACTIONS (1)
  - Disease progression [Unknown]
